FAERS Safety Report 4320742-6 (Version None)
Quarter: 2004Q1

REPORT INFORMATION
  Report Type: 
  Country: None (occurrence: None)
  Receive Date: 20040315
  Receipt Date: 20040126
  Transmission Date: 20041129
  Serious: No
  Sender: FDA-Public Use
  Company Number: 2003181780US

PATIENT
  Age: 65 Year
  Sex: Female

DRUGS (4)
  1. BEXTRA [Suspect]
     Indication: PAIN IN EXTREMITY
     Dosage: 20 MG, ORAL
     Route: 048
     Dates: start: 20031007
  2. DILANTIN [Concomitant]
  3. LIPITOR [Concomitant]
  4. PRILOSEC [Concomitant]

REACTIONS (2)
  - CHAPPED LIPS [None]
  - CYANOSIS [None]
